FAERS Safety Report 5941607-X (Version None)
Quarter: 2008Q4

REPORT INFORMATION
  Report Type: 
  Country: None (occurrence: None)
  Receive Date: 20081104
  Receipt Date: 20081104
  Transmission Date: 20090506
  Serious: No
  Sender: FDA-Public Use
  Company Number: None

PATIENT
  Age: 18 Year
  Sex: Female
  Weight: 52.1637 kg

DRUGS (1)
  1. ACCUTANE [Suspect]
     Indication: ACNE
     Dosage: DAILY FOR 6 MONTHS
     Dates: start: 20060301, end: 20060831

REACTIONS (2)
  - CROHN'S DISEASE [None]
  - INTESTINAL FISTULA [None]
